FAERS Safety Report 5262883-5 (Version None)
Quarter: 2007Q1

REPORT INFORMATION
  Report Type: 
  Country: None (occurrence: None)
  Receive Date: 20070308
  Receipt Date: 20070213
  Transmission Date: 20070707
  Serious: Yes (Death)
  Sender: FDA-Public Use
  Company Number: 6030376

PATIENT
  Age: 60 Year
  Sex: Male

DRUGS (7)
  1. PAROXETINE [Suspect]
     Indication: ANXIETY
     Dosage: ORAL
     Route: 048
     Dates: start: 20060906
  2. ASPIRIN [Concomitant]
  3. DIAZEPAM [Concomitant]
  4. METFORMIN HCL [Concomitant]
  5. PERINDOPRIL ERBUMINE [Concomitant]
  6. SALBUTAMOL (SALBUTAMOL) [Concomitant]
  7. SIMVASTATIN [Concomitant]

REACTIONS (1)
  - COMPLETED SUICIDE [None]
